FAERS Safety Report 13708190 (Version 2)
Quarter: 2017Q3

REPORT INFORMATION
  Report Type: Other
  Country: US (occurrence: US)
  Receive Date: 20170630
  Receipt Date: 20170727
  Transmission Date: 20171127
  Serious: Yes (Other)
  Sender: FDA-Public Use
  Company Number: US-AMNEAL PHARMACEUTICALS-2017AMN00695

PATIENT
  Age: 35 Year
  Sex: Female
  Weight: 58.5 kg

DRUGS (3)
  1. BUPRENORPHINE AND NALOXONE [Suspect]
     Active Substance: BUPRENORPHINE\NALOXONE
     Indication: DRUG USE DISORDER
     Dosage: 2 TABLETS, 1X/DAY
     Route: 060
     Dates: start: 20170523
  2. CLONIDINE. [Concomitant]
     Active Substance: CLONIDINE
     Indication: ANXIETY
     Dosage: 0.2 UNKNOWN, 3X/DAY
     Route: 065
  3. TRAZODONE [Concomitant]
     Active Substance: TRAZODONE HYDROCHLORIDE
     Indication: INSOMNIA
     Dosage: 100 MG, 1X/DAY (AS NEEDED)
     Route: 065

REACTIONS (13)
  - Suicidal ideation [Unknown]
  - Intentional overdose [Unknown]
  - Withdrawal syndrome [Unknown]
  - Abdominal discomfort [Unknown]
  - Anxiety [Unknown]
  - Product solubility abnormal [Unknown]
  - Pain [Unknown]
  - Insomnia [Unknown]
  - Depression [Unknown]
  - Product physical issue [Unknown]
  - Product substitution issue [Unknown]
  - Drug ineffective [Unknown]
  - Drug dependence [Unknown]

NARRATIVE: CASE EVENT DATE: 20170523
